FAERS Safety Report 6551524-2 (Version None)
Quarter: 2010Q1

REPORT INFORMATION
  Report Type: 
  Country: None (occurrence: None)
  Receive Date: 20100120
  Receipt Date: 20100107
  Transmission Date: 20100710
  Serious: Yes (Hospitalization, Other)
  Sender: FDA-Public Use
  Company Number: 234827K09USA

PATIENT
  Age: 26 Year
  Sex: Female

DRUGS (12)
  1. REBIF [Suspect]
     Indication: MULTIPLE SCLEROSIS
     Dosage: 44 MCG, 3 IN 1 WEEKS, SUBCUTANEOUS
     Route: 058
     Dates: start: 20081001
  2. REMERON [Concomitant]
  3. DIAZEPAM [Concomitant]
  4. PHENERGAN (PROMETHAZINE) [Concomitant]
  5. LORTAB (VICODIN) [Concomitant]
  6. AMITRIPTYLINE HCL [Concomitant]
  7. STEROIDS (CORTICOSTEROIDS) [Concomitant]
  8. TRAMADOL HCL [Concomitant]
  9. METHOCARBAMOL (METHOCARBAMAOL) [Concomitant]
  10. IBUPROFEN [Concomitant]
  11. NEURONTIN [Concomitant]
  12. CELEXA [Concomitant]

REACTIONS (12)
  - ABDOMINAL DISTENSION [None]
  - BLOOD GLUCOSE DECREASED [None]
  - COELIAC DISEASE [None]
  - COMPUTERISED TOMOGRAM ABNORMAL [None]
  - FEELING HOT [None]
  - FLUSHING [None]
  - GASTROINTESTINAL DISORDER [None]
  - HYPERHIDROSIS [None]
  - NO THERAPEUTIC RESPONSE [None]
  - OVARIAN CYST [None]
  - PAIN [None]
  - PELVIC CONGESTION [None]
